FAERS Safety Report 10815356 (Version 2)
Quarter: 2015Q2

REPORT INFORMATION
  Report Type: Spontaneous
  Country: JP (occurrence: JP)
  Receive Date: 20150218
  Receipt Date: 20150409
  Transmission Date: 20150821
  Serious: Yes (Hospitalization)
  Sender: FDA-Public Use
  Company Number: JP-UCBSA-2014022444

PATIENT
  Age: 29 Year
  Sex: Male
  Weight: 30 kg

DRUGS (14)
  1. KEPPRA [Suspect]
     Active Substance: LEVETIRACETAM
     Dosage: 312.5 MG, 2X/DAY (BID)
     Route: 048
     Dates: start: 20120815, end: 20120911
  2. L-CARNITINE [Concomitant]
     Active Substance: CARNITINE
     Indication: PRODUCT USED FOR UNKNOWN INDICATION
     Dosage: 900 MG, UNK
     Route: 048
  3. PHENOBARBITAL. [Concomitant]
     Active Substance: PHENOBARBITAL
     Indication: PRODUCT USED FOR UNKNOWN INDICATION
     Dosage: 60 MG, UNK
     Route: 048
  4. KEPPRA [Suspect]
     Active Substance: LEVETIRACETAM
     Indication: EPILEPSY
     Dosage: 250 MG, ONCE DAILY (QD)
     Route: 048
     Dates: start: 20110725, end: 20110911
  5. KEPPRA [Suspect]
     Active Substance: LEVETIRACETAM
     Dosage: 250 MG, 2X/DAY (BID)
     Route: 048
     Dates: start: 20110912, end: 20120111
  6. KEPPRA [Suspect]
     Active Substance: LEVETIRACETAM
     Dosage: 250 MG, 2X/DAY (BID)
     Route: 048
     Dates: start: 20121107, end: 20140715
  7. KEPPRA [Suspect]
     Active Substance: LEVETIRACETAM
     Dosage: 375 MG, 2X/DAY (BID)
     Route: 048
     Dates: start: 20120112, end: 20120215
  8. KEPPRA [Suspect]
     Active Substance: LEVETIRACETAM
     Dosage: 312.5 MG, 2X/DAY (BID)
     Route: 048
     Dates: start: 20121027, end: 20121106
  9. KEPPRA [Suspect]
     Active Substance: LEVETIRACETAM
     Dosage: 250 MG, 2X/DAY (BID)
     Route: 048
     Dates: start: 20120216, end: 20120814
  10. KEPPRA [Suspect]
     Active Substance: LEVETIRACETAM
     Dosage: 312.5 MG, 2X/DAY (BID)
     Route: 048
     Dates: start: 20140716, end: 20141025
  11. DEPAKENE [Concomitant]
     Active Substance: VALPROIC ACID
     Indication: PRODUCT USED FOR UNKNOWN INDICATION
     Dosage: 700 MG, UNK
     Route: 048
  12. GASTER [Concomitant]
     Active Substance: FAMOTIDINE
     Indication: PRODUCT USED FOR UNKNOWN INDICATION
     Dosage: 20 MG
     Route: 048
  13. KEPPRA [Suspect]
     Active Substance: LEVETIRACETAM
     Dosage: 375 MG, 2X/DAY (BID)
     Route: 048
     Dates: start: 20120912, end: 20121026
  14. EXCEGRAN [Concomitant]
     Active Substance: ZONISAMIDE
     Indication: PRODUCT USED FOR UNKNOWN INDICATION
     Dosage: 350 MG, UNK
     Route: 048

REACTIONS (3)
  - Bronchitis [Recovered/Resolved]
  - Epilepsy [Recovering/Resolving]
  - Sleep phase rhythm disturbance [Recovering/Resolving]

NARRATIVE: CASE EVENT DATE: 201201
